FAERS Safety Report 4901215-6 (Version None)
Quarter: 2006Q1

REPORT INFORMATION
  Report Type: 
  Country: None (occurrence: None)
  Receive Date: 20060202
  Receipt Date: 20060124
  Transmission Date: 20060701
  Serious: Yes (Death, Other)
  Sender: FDA-Public Use
  Company Number: 2005162006

PATIENT
  Age: 52 Year
  Sex: Male
  Weight: 86.1834 kg

DRUGS (10)
  1. TIKOSYN [Suspect]
     Indication: ATRIAL FIBRILLATION
     Dosage: 500 MCG (250 MCG, 2 IN 1 D), ORAL
     Route: 048
     Dates: start: 20051025
  2. TIKOSYN [Suspect]
     Indication: VENTRICULAR TACHYCARDIA
     Dosage: 500 MCG (250 MCG, 2 IN 1 D), ORAL
     Route: 048
     Dates: start: 20051025
  3. METFORMIN HCL [Concomitant]
  4. ACTOS [Concomitant]
  5. AMARYL [Concomitant]
  6. ENALAPRIL MALEATE [Concomitant]
  7. INSPRA [Concomitant]
  8. ASPIRIN [Concomitant]
  9. PLAVIX [Concomitant]
  10. FUROSEMIDE [Concomitant]

REACTIONS (9)
  - CARDIAC FAILURE CONGESTIVE [None]
  - CARDIAC PACEMAKER INSERTION [None]
  - CONSTIPATION [None]
  - DYSPNOEA [None]
  - HAEMOTHORAX [None]
  - HYPOTENSION [None]
  - IMPLANTABLE DEFIBRILLATOR MALFUNCTION [None]
  - INSOMNIA [None]
  - OEDEMA PERIPHERAL [None]
